FAERS Safety Report 7902690-5 (Version None)
Quarter: 2011Q4

REPORT INFORMATION
  Report Type: 
  Country: None (occurrence: None)
  Receive Date: 20111108
  Receipt Date: 20111031
  Transmission Date: 20120403
  Serious: No
  Sender: FDA-Public Use
  Company Number: JP-MERCK-1110USA02551

PATIENT
  Age: 44 Year
  Sex: Male

DRUGS (2)
  1. NOVOLIN R [Concomitant]
     Indication: TYPE 2 DIABETES MELLITUS
     Dosage: MORNING: 14 IU, NOON 10IU, EVENING 10IU
     Route: 058
  2. JANUVIA [Suspect]
     Indication: TYPE 2 DIABETES MELLITUS
     Route: 048
     Dates: start: 20111003, end: 20111011

REACTIONS (3)
  - OEDEMA PERIPHERAL [None]
  - FEELING HOT [None]
  - SKIN DISCOLOURATION [None]
